FAERS Safety Report 9796276 (Version 3)
Quarter: 2018Q1

REPORT INFORMATION
  Report Type: Report from Study
  Country: DE (occurrence: DE)
  Receive Date: 20140103
  Receipt Date: 20180214
  Transmission Date: 20180509
  Serious: Yes (Other)
  Sender: FDA-Public Use
  Company Number: DE-CELGENEUS-062-21660-13124255

PATIENT

DRUGS (12)
  1. DOCETAXEL. [Concomitant]
     Active Substance: DOCETAXEL
     Indication: BREAST CANCER
     Dosage: 75 MILLIGRAM/SQ. METER
     Route: 065
  2. DOCETAXEL. [Concomitant]
     Active Substance: DOCETAXEL
     Dosage: 60 MILLIGRAM/SQ. METER
     Route: 065
  3. CYCLOPHOSPHAMIDE. [Concomitant]
     Active Substance: CYCLOPHOSPHAMIDE
     Dosage: 500 MICROGRAM/SQ. METER
     Route: 065
  4. CYCLOPHOSPHAMIDE. [Concomitant]
     Active Substance: CYCLOPHOSPHAMIDE
     Dosage: 500 MICROGRAM/SQ. METER
     Route: 065
  5. ABRAXANE [Suspect]
     Active Substance: PACLITAXEL
     Indication: BREAST CANCER
     Dosage: 330 MILLIGRAM/SQ. METER
     Route: 041
  6. EPIRUBICIN [Concomitant]
     Active Substance: EPIRUBICIN
     Indication: BREAST CANCER
     Dosage: 150 MILLIGRAM/SQ. METER
     Route: 065
  7. EPIRUBICIN [Concomitant]
     Active Substance: EPIRUBICIN
     Dosage: 90 MILLIGRAM/SQ. METER
     Route: 065
  8. CYCLOPHOSPHAMIDE. [Concomitant]
     Active Substance: CYCLOPHOSPHAMIDE
     Dosage: 500 MICROGRAM/SQ. METER
     Route: 065
  9. CYCLOPHOSPHAMIDE. [Concomitant]
     Active Substance: CYCLOPHOSPHAMIDE
     Dosage: 500 MICROGRAM/SQ. METER
     Route: 065
  10. TRASTUZUMAB. [Concomitant]
     Active Substance: TRASTUZUMAB
     Indication: PRODUCT USED FOR UNKNOWN INDICATION
     Route: 058
  11. DOCETAXEL. [Concomitant]
     Active Substance: DOCETAXEL
     Dosage: 100 MILLIGRAM/SQ. METER
     Route: 065
  12. CYCLOPHOSPHAMIDE. [Concomitant]
     Active Substance: CYCLOPHOSPHAMIDE
     Indication: BREAST CANCER
     Dosage: 2000 MILLIGRAM/SQ. METER
     Route: 065

REACTIONS (78)
  - Respiratory disorder [Unknown]
  - Hypertension [Unknown]
  - Neutropenia [Unknown]
  - Febrile neutropenia [Unknown]
  - Dizziness [Unknown]
  - Cranial nerve disorder [Unknown]
  - Alanine aminotransferase increased [Unknown]
  - Headache [Unknown]
  - Abdominal pain upper [Unknown]
  - Nail disorder [Unknown]
  - Erythema [Unknown]
  - Administration site reaction [Unknown]
  - Angiopathy [Unknown]
  - Embolism [Unknown]
  - Bone pain [Unknown]
  - Epistaxis [Unknown]
  - Cough [Unknown]
  - Rash [Unknown]
  - Dry skin [Unknown]
  - Skin disorder [Unknown]
  - Hot flush [Unknown]
  - Investigation abnormal [Unknown]
  - Fatigue [Unknown]
  - Thrombocytopenia [Unknown]
  - Eye disorder [Unknown]
  - Musculoskeletal disorder [Unknown]
  - Pain [Unknown]
  - Oesophagitis [Unknown]
  - Pulmonary embolism [Unknown]
  - Alopecia [Unknown]
  - Macular oedema [Unknown]
  - Ear disorder [Unknown]
  - Gastrointestinal disorder [Unknown]
  - Palmar-plantar erythrodysaesthesia syndrome [Unknown]
  - Anaemia [Unknown]
  - Stomatitis [Unknown]
  - Infection [Unknown]
  - Left ventricular dysfunction [Unknown]
  - Anaphylactic reaction [Unknown]
  - Neoplasm [Unknown]
  - Cardiac disorder [Unknown]
  - Oedema [Unknown]
  - Nervous system disorder [Unknown]
  - Lacrimation increased [Unknown]
  - Dry mouth [Unknown]
  - Back pain [Unknown]
  - Peripheral sensory neuropathy [Unknown]
  - Vomiting [Unknown]
  - Diarrhoea [Unknown]
  - Leukopenia [Unknown]
  - Neuropathy peripheral [Unknown]
  - Lymphopenia [Unknown]
  - Decreased appetite [Unknown]
  - Blood bilirubin increased [Unknown]
  - Immune system disorder [Unknown]
  - Dry eye [Unknown]
  - Surgical failure [Unknown]
  - Mental disorder [Unknown]
  - Adverse event [Unknown]
  - Mucosal inflammation [Unknown]
  - Myalgia [Unknown]
  - Hypersensitivity [Unknown]
  - Arthralgia [Unknown]
  - Aspartate aminotransferase increased [Unknown]
  - Nausea [Unknown]
  - Dyspnoea [Unknown]
  - Constipation [Unknown]
  - Hepatobiliary disease [Unknown]
  - Injury [Unknown]
  - Haematotoxicity [Unknown]
  - Pyrexia [Unknown]
  - Blood alkaline phosphatase increased [Unknown]
  - Blood creatinine increased [Unknown]
  - Endocrine disorder [Unknown]
  - Dyspepsia [Unknown]
  - Abdominal pain [Unknown]
  - Renal disorder [Unknown]
  - Breast disorder [Unknown]
